FAERS Safety Report 20211190 (Version 1)
Quarter: 2021Q4

REPORT INFORMATION
  Report Type: Report from Study
  Country: CA (occurrence: CA)
  Receive Date: 20211221
  Receipt Date: 20211221
  Transmission Date: 20220303
  Serious: Yes (Other)
  Sender: FDA-Public Use
  Company Number: CA-BoehringerIngelheim-2021-BI-122043

PATIENT
  Age: 76 Year
  Sex: Male

DRUGS (2)
  1. PREDNISONE [Concomitant]
     Active Substance: PREDNISONE
     Indication: Product used for unknown indication
  2. OFEV [Suspect]
     Active Substance: NINTEDANIB
     Indication: Product used for unknown indication
     Dosage: 150MG BID
     Route: 048
     Dates: start: 20200806

REACTIONS (4)
  - Epistaxis [Recovered/Resolved]
  - Overdose [Recovered/Resolved]
  - Haemorrhoidal haemorrhage [Unknown]
  - Gastrointestinal disorder [Unknown]
